FAERS Safety Report 4380160-1 (Version None)
Quarter: 2004Q2

REPORT INFORMATION
  Report Type: 
  Country: None (occurrence: None)
  Receive Date: 20040614
  Receipt Date: 20040422
  Transmission Date: 20050107
  Serious: No
  Sender: FDA-Public Use
  Company Number: M04-341-122

PATIENT
  Age: 54 Year
  Sex: Female
  Weight: 130 kg

DRUGS (3)
  1. VELCADE [Suspect]
     Indication: MULTIPLE MYELOMA
     Dosage: 1 MG/M2; INTRAVENOUS BOLUS
     Route: 040
     Dates: start: 20040119, end: 20040331
  2. ARANESP [Concomitant]
  3. IMMUNE GLOBULIN INTRAVENOUS (HUMAN) [Concomitant]

REACTIONS (10)
  - ABASIA [None]
  - AURICULAR SWELLING [None]
  - COMA [None]
  - DERMOGRAPHISM [None]
  - DISORIENTATION [None]
  - EYELID OEDEMA [None]
  - FALL [None]
  - LOCAL SWELLING [None]
  - OEDEMA PERIPHERAL [None]
  - SWELLING FACE [None]
